FAERS Safety Report 7093567-9 (Version None)
Quarter: 2010Q4

REPORT INFORMATION
  Report Type: 
  Country: None (occurrence: None)
  Receive Date: 20101110
  Receipt Date: 20101104
  Transmission Date: 20110411
  Serious: Yes (Other)
  Sender: FDA-Public Use
  Company Number: BE-ROCHE-706123

PATIENT
  Sex: Female
  Weight: 68 kg

DRUGS (7)
  1. ROACTEMRA [Suspect]
     Indication: RHEUMATOID ARTHRITIS
     Dosage: TOTAL MONTHY DOSE: 544 MG.
     Route: 042
     Dates: start: 20090607, end: 20100526
  2. LEDERTREXATE [Suspect]
     Indication: RHEUMATOID ARTHRITIS
     Dosage: DOSE:8X2.5MG
     Route: 048
  3. ACCUPRIL [Concomitant]
     Indication: HYPERTENSION
     Route: 048
  4. MINOXIDIL [Concomitant]
     Indication: HYPERTENSION
     Dosage: DRUG REPORTED: MONOXIDIN
     Route: 048
  5. CRESTOR [Concomitant]
     Indication: HYPERCHOLESTEROLAEMIA
     Route: 048
  6. HUMALOG [Concomitant]
     Route: 058
  7. CLOZAN [Concomitant]
     Indication: ANXIETY
     Route: 048

REACTIONS (2)
  - DIVERTICULITIS [None]
  - MALIGNANT MELANOMA [None]
